FAERS Safety Report 4452499-2 (Version None)
Quarter: 2004Q3

REPORT INFORMATION
  Report Type: 
  Country: None (occurrence: None)
  Receive Date: 20040916
  Receipt Date: 20040907
  Transmission Date: 20050211
  Serious: Yes (Other)
  Sender: FDA-Public Use
  Company Number: 2004209628CA

PATIENT
  Age: 54 Year
  Sex: Female

DRUGS (2)
  1. BEXTRA [Suspect]
     Dosage: ORAL
     Route: 048
     Dates: end: 20040101
  2. COBALT BLUE DYE [Suspect]

REACTIONS (2)
  - RASH [None]
  - REACTION TO COLOURING [None]
